FAERS Safety Report 24684104 (Version 1)
Quarter: 2024Q4

REPORT INFORMATION
  Report Type: Spontaneous
  Country: US (occurrence: US)
  Receive Date: 20241202
  Receipt Date: 20241202
  Transmission Date: 20250115
  Serious: Yes (Other)
  Sender: TEVA
  Company Number: US-TEVA-VS-3269027

PATIENT

DRUGS (1)
  1. CLONAZEPAM [Suspect]
     Active Substance: CLONAZEPAM
     Indication: Product used for unknown indication
     Dosage: FOR MOST OF THE LAST 18 YEARS.
     Route: 048

REACTIONS (3)
  - Drug dependence [Unknown]
  - Anxiety [Unknown]
  - Product availability issue [Unknown]
